FAERS Safety Report 17717314 (Version 1)
Quarter: 2020Q2

REPORT INFORMATION
  Report Type: Spontaneous
  Country: US (occurrence: US)
  Receive Date: 20200428
  Receipt Date: 20200428
  Transmission Date: 20200714
  Serious: No
  Sender: FDA-Public Use
  Company Number: US-MYLANLABS-2020M1041508

PATIENT
  Sex: Male
  Weight: 66 kg

DRUGS (2)
  1. CLONOPIN [Concomitant]
     Active Substance: CLONAZEPAM
     Dosage: UNK
  2. FENTANYL. [Suspect]
     Active Substance: FENTANYL
     Indication: PROCEDURAL PAIN
     Dosage: CHANGE EVERY 72 HOURS
     Route: 062

REACTIONS (1)
  - Therapeutic product effect decreased [Not Recovered/Not Resolved]
